FAERS Safety Report 8044512-0 (Version None)
Quarter: 2012Q1

REPORT INFORMATION
  Report Type: 
  Country: None (occurrence: None)
  Receive Date: 20120113
  Receipt Date: 20120111
  Transmission Date: 20120608
  Serious: Yes (Other)
  Sender: FDA-Public Use
  Company Number: JP-PFIZER INC-2011307914

PATIENT
  Age: 69 Year
  Sex: Male
  Weight: 67 kg

DRUGS (10)
  1. MIDAZOLAM [Suspect]
     Indication: GENERAL ANAESTHESIA
     Route: 008
  2. ROCURONIUM BROMIDE [Suspect]
     Indication: GENERAL ANAESTHESIA
     Route: 008
  3. TRANEXAMIC ACID [Suspect]
     Indication: PROPHYLAXIS
     Route: 042
  4. DOPAMINE HCL [Suspect]
     Indication: ANAESTHESIA
  5. HEPARIN [Suspect]
     Indication: PROPHYLAXIS
     Route: 042
  6. ULINASTATIN [Suspect]
     Indication: PROPHYLAXIS
     Route: 042
  7. KETAMINE HCL [Suspect]
     Indication: GENERAL ANAESTHESIA
     Dosage: UNK
     Route: 008
     Dates: start: 20110301
  8. REMIFENTANIL HYDROCHLORIDE [Suspect]
     Indication: GENERAL ANAESTHESIA
     Route: 008
  9. PROPOFOL [Suspect]
     Indication: ANAESTHESIA
  10. CEFAZOLIN SODIUM [Suspect]
     Indication: PROPHYLAXIS
     Route: 042

REACTIONS (8)
  - HEPATIC HAEMORRHAGE [None]
  - ANAPHYLACTIC SHOCK [None]
  - PERICARDIAL EFFUSION [None]
  - ELECTROCARDIOGRAM QRS COMPLEX SHORTENED [None]
  - ERYTHEMA [None]
  - LIVER INJURY [None]
  - PULSELESS ELECTRICAL ACTIVITY [None]
  - INTRA-ABDOMINAL HAEMORRHAGE [None]
